FAERS Safety Report 9771457 (Version 2)
Quarter: 2014Q1

REPORT INFORMATION
  Report Type: Spontaneous
  Country: US (occurrence: US)
  Receive Date: 20131219
  Receipt Date: 20140131
  Transmission Date: 20141002
  Serious: Yes (Hospitalization, Other)
  Sender: FDA-Public Use
  Company Number: PHEH2013US025906

PATIENT
  Sex: Male

DRUGS (6)
  1. FOCALIN XR [Suspect]
     Dosage: 10 MG, PRN
  2. FOCALIN [Suspect]
     Dosage: UNK UKN, UNK
  3. TRAZODONE [Concomitant]
     Dosage: UNK UKN, UNK
  4. DRUG THERAPY NOS [Concomitant]
     Indication: BLOOD PRESSURE ABNORMAL
  5. SLEEP AID [Concomitant]
     Indication: INSOMNIA
     Dosage: UNK UKN, UNK
  6. ADDERALL [Concomitant]
     Dosage: UNK UKN, UNK

REACTIONS (9)
  - Malaise [Unknown]
  - General physical health deterioration [Unknown]
  - Mass [Unknown]
  - Palpitations [Unknown]
  - Memory impairment [Unknown]
  - Attention deficit/hyperactivity disorder [Unknown]
  - Disturbance in attention [Unknown]
  - Insomnia [Unknown]
  - Hypertension [Unknown]
